FAERS Safety Report 11990034 (Version 1)
Quarter: 2016Q1

REPORT INFORMATION
  Report Type: Spontaneous
  Country: US (occurrence: US)
  Receive Date: 20160202
  Receipt Date: 20160202
  Transmission Date: 20160526
  Serious: No
  Sender: FDA-Public Use
  Company Number: US-ROCHE-1616785

PATIENT
  Sex: Female

DRUGS (1)
  1. BONIVA [Suspect]
     Active Substance: IBANDRONATE SODIUM
     Indication: OSTEOPENIA
     Dosage: 3MG/3ML INJECTION, STARTED 2.5 YEARS AGO
     Route: 042

REACTIONS (6)
  - Swelling [Recovering/Resolving]
  - Bone density decreased [Unknown]
  - Anxiety [Unknown]
  - Injection site pain [Recovering/Resolving]
  - Extravasation [Unknown]
  - Epigastric discomfort [Unknown]
